FAERS Safety Report 6408705-8 (Version None)
Quarter: 2009Q4

REPORT INFORMATION
  Report Type: 
  Country: None (occurrence: None)
  Receive Date: 20091021
  Receipt Date: 20090923
  Transmission Date: 20100525
  Serious: Yes (Death, Other)
  Sender: FDA-Public Use
  Company Number: BR-JNJFOC-20090806202

PATIENT
  Sex: Female
  Weight: 50 kg

DRUGS (12)
  1. TYLEX [Suspect]
     Route: 065
  2. TYLEX [Suspect]
     Indication: CANCER PAIN
     Route: 065
  3. HIDANTAL [Interacting]
     Indication: DRUG USE FOR UNKNOWN INDICATION
     Route: 065
  4. BETAHISTINE [Concomitant]
     Route: 065
  5. MEMANTINE HCL [Concomitant]
     Route: 065
  6. RISPERIDONE [Concomitant]
     Route: 065
  7. SIMVASTATIN [Concomitant]
     Route: 065
  8. CLOPIDOGREL [Concomitant]
     Route: 065
  9. OMEPRAZOLE [Concomitant]
     Route: 065
  10. NUTRIMAIS [Concomitant]
     Route: 065
  11. ERGOLOID MESYLATES [Concomitant]
     Route: 065
  12. ARADOIS [Concomitant]
     Route: 065

REACTIONS (6)
  - BLOOD GLUCOSE INCREASED [None]
  - CARDIOMEGALY [None]
  - DRUG INTERACTION [None]
  - NEOPLASM MALIGNANT [None]
  - PRE-EXISTING DISEASE [None]
  - SOMNOLENCE [None]
